FAERS Safety Report 5205711-6 (Version None)
Quarter: 2007Q1

REPORT INFORMATION
  Report Type: 
  Country: None (occurrence: None)
  Receive Date: 20070111
  Receipt Date: 20070104
  Transmission Date: 20070707
  Serious: Yes (Hospitalization)
  Sender: FDA-Public Use
  Company Number: GB-NOVOPROD-258830

PATIENT
  Sex: Female
  Weight: 77.2 kg

DRUGS (5)
  1. LEVEMIR [Suspect]
     Indication: INSULIN-REQUIRING TYPE II DIABETES MELLITUS
     Dosage: 17 IU, QD
     Route: 058
     Dates: start: 20050817
  2. ETODOLAC [Concomitant]
     Dosage: 500 MG, QD
     Route: 048
     Dates: start: 20040101
  3. ASPIRIN [Concomitant]
     Dosage: 75 MG, QD
     Route: 048
     Dates: start: 20040101
  4. ATORVASTATIN CALCIUM [Concomitant]
     Dosage: 20 MG, QD
     Route: 048
     Dates: start: 20040101
  5. ATENOLOL [Concomitant]
     Dosage: 50 MG, QD
     Route: 048
     Dates: start: 20020527

REACTIONS (2)
  - FALL [None]
  - FEMORAL NECK FRACTURE [None]
